FAERS Safety Report 15120676 (Version 5)
Quarter: 2020Q1

REPORT INFORMATION
  Report Type: Spontaneous
  Country: US (occurrence: US)
  Receive Date: 20180709
  Receipt Date: 20200305
  Transmission Date: 20200409
  Serious: No
  Sender: FDA-Public Use
  Company Number: US-SA-2018SA178275

PATIENT
  Age: 71 Year
  Sex: Male

DRUGS (2)
  1. LANTUS SOLOSTAR [Suspect]
     Active Substance: INSULIN GLARGINE
     Indication: TYPE 2 DIABETES MELLITUS
     Dosage: 40 IU, HS
     Route: 065
  2. LANTUS SOLOSTAR [Suspect]
     Active Substance: INSULIN GLARGINE
     Dosage: 30 IU, QD
     Route: 065

REACTIONS (7)
  - Blood glucose fluctuation [Unknown]
  - Needle issue [Unknown]
  - Ankle fracture [Unknown]
  - Fall [Unknown]
  - Blood glucose increased [Unknown]
  - Wrong technique in device usage process [Unknown]
  - Product dose omission [Unknown]
